FAERS Safety Report 9630232 (Version 2)
Quarter: 2013Q4

REPORT INFORMATION
  Report Type: Spontaneous
  Country: US (occurrence: US)
  Receive Date: 20131017
  Receipt Date: 20131217
  Transmission Date: 20140711
  Serious: Yes (Other)
  Sender: FDA-Public Use
  Company Number: US-ABBVIE-13P-163-1158893-00

PATIENT
  Age: 35 Year
  Sex: Female
  Weight: 63.56 kg

DRUGS (4)
  1. SYNTHROID [Suspect]
     Indication: HORMONE REPLACEMENT THERAPY
     Dates: start: 20030729
  2. SYNTHROID [Suspect]
     Dates: start: 20101102
  3. SYNTHROID [Suspect]
     Dates: start: 20130405
  4. SYNTHROID [Suspect]
     Dosage: 125/137 MCG
     Dates: start: 20131018

REACTIONS (1)
  - Ectopic pregnancy [Unknown]
